FAERS Safety Report 21647947 (Version 4)
Quarter: 2023Q1

REPORT INFORMATION
  Report Type: Report from Study
  Country: AR (occurrence: None)
  Receive Date: 20221128
  Receipt Date: 20230320
  Transmission Date: 20230417
  Serious: Yes (Life-Threatening, Hospitalization)
  Sender: FDA-Public Use
  Company Number: AR-ROCHE-3224839

PATIENT
  Age: 36 Year
  Sex: Male
  Weight: 71.1 kg

DRUGS (8)
  1. ATEZOLIZUMAB [Suspect]
     Active Substance: ATEZOLIZUMAB
     Indication: Non-small cell lung cancer
     Dosage: MOST RECENT DOSE: 18/NOV/2022, 1200MG
     Route: 041
     Dates: start: 20220707
  2. BEVACIZUMAB [Suspect]
     Active Substance: BEVACIZUMAB
     Indication: Non-small cell lung cancer
     Dosage: MOST RECENT DOSE: 18/NOV/2022, 1070 MG
     Route: 042
     Dates: start: 20220707
  3. CARBOPLATIN [Suspect]
     Active Substance: CARBOPLATIN
     Indication: Non-small cell lung cancer
     Dosage: MOST RECENT DOSE: 15/SEP/2022, 665MG
     Route: 042
     Dates: start: 20220707
  4. PEMETREXED [Suspect]
     Active Substance: PEMETREXED
     Indication: Non-small cell lung cancer
     Dosage: MOST RECENT DOSE: 18/NOV/2022, 950 MG
     Route: 042
     Dates: start: 20220707
  5. OMEPRAZOLE [Concomitant]
     Active Substance: OMEPRAZOLE
     Route: 048
     Dates: start: 20220601, end: 20221121
  6. OMEPRAZOLE [Concomitant]
     Active Substance: OMEPRAZOLE
     Route: 042
     Dates: start: 20221122
  7. FOLIC ACID [Concomitant]
     Active Substance: FOLIC ACID
     Route: 048
     Dates: start: 20220426
  8. ONDANSETRON [Concomitant]
     Active Substance: ONDANSETRON
     Dates: start: 20220729

REACTIONS (1)
  - Acute abdomen [Recovered/Resolved]

NARRATIVE: CASE EVENT DATE: 20221122
